FAERS Safety Report 10264377 (Version 1)
Quarter: 2014Q2

REPORT INFORMATION
  Report Type: Spontaneous
  Country: US (occurrence: None)
  Receive Date: 20140624
  Receipt Date: 20140624
  Transmission Date: 20141212
  Serious: Yes (Life-Threatening, Other)
  Sender: FDA-Public Use
  Company Number: None

PATIENT
  Age: 54 Year
  Sex: Female
  Weight: 68.04 kg

DRUGS (28)
  1. QUETIAPINE FUMARATE [Suspect]
     Indication: POST-TRAUMATIC STRESS DISORDER
     Dosage: 300 MG PM (+)?25-50 MG DAILY ?1(+) ?1/2-1?BEDTIME (+) DAILY?MOUTH
     Route: 048
  2. QUETIAPINE FUMARATE [Suspect]
     Indication: BIPOLAR DISORDER
     Dosage: 300 MG PM (+)?25-50 MG DAILY ?1(+) ?1/2-1?BEDTIME (+) DAILY?MOUTH
     Route: 048
  3. TENS [Concomitant]
  4. CRUTCHES [Concomitant]
  5. WHEELED WALKER [Concomitant]
  6. ADVAIR [Concomitant]
  7. QUETIAPINE [Concomitant]
  8. LAMOTRIGINE [Concomitant]
  9. CYMBALTA [Concomitant]
  10. CLONAZEPAM [Concomitant]
  11. DESMOPRESSIN [Concomitant]
  12. OMPREZOLE [Concomitant]
  13. TIZANIDE [Concomitant]
  14. MULTI-VITAMIN [Concomitant]
  15. CALCIUM (+) [Concomitant]
  16. VIT D [Concomitant]
  17. BLACK COHOSH [Concomitant]
  18. DHEA [Concomitant]
  19. FISH OIL [Concomitant]
  20. GINKO BILOBO [Concomitant]
  21. ACIDOPHILUS [Concomitant]
  22. LEVALBUTEROL [Concomitant]
  23. LOMOTIL [Concomitant]
  24. IBUPROFEN [Concomitant]
  25. TRIAMCINOLONE [Concomitant]
  26. ACETONIDE CREAM [Concomitant]
  27. HEATING PAD [Concomitant]
  28. ICE PACKS [Concomitant]

REACTIONS (4)
  - Somnambulism [None]
  - Somnambulism [None]
  - Road traffic accident [None]
  - Disturbance in attention [None]
